FAERS Safety Report 12933558 (Version 1)
Quarter: 2016Q4

REPORT INFORMATION
  Report Type: Spontaneous
  Country: US (occurrence: US)
  Receive Date: 20161111
  Receipt Date: 20161111
  Transmission Date: 20170207
  Serious: Yes (Hospitalization, Other)
  Sender: FDA-Public Use
  Company Number: US-GLAXOSMITHKLINE-US2016165072

PATIENT
  Age: 66 Year
  Sex: Female

DRUGS (2)
  1. PREVACID [Suspect]
     Active Substance: LANSOPRAZOLE
     Indication: GASTROOESOPHAGEAL REFLUX DISEASE
     Dosage: 2 DF, QD
     Route: 048
  2. PREVACID [Suspect]
     Active Substance: LANSOPRAZOLE
     Dosage: UNK

REACTIONS (4)
  - Choking sensation [Recovering/Resolving]
  - Overdose [Unknown]
  - Off label use [Unknown]
  - Myocardial infarction [Recovering/Resolving]
